FAERS Safety Report 10403621 (Version 2)
Quarter: 2014Q3

REPORT INFORMATION
  Report Type: Spontaneous
  Country: US (occurrence: US)
  Receive Date: 20140822
  Receipt Date: 20140822
  Transmission Date: 20150326
  Serious: Yes (Hospitalization, Disabling, Other)
  Sender: FDA-Public Use
  Company Number: US-009507513-2010SP009228

PATIENT
  Sex: Female
  Weight: 83.46 kg

DRUGS (1)
  1. NUVARING [Suspect]
     Active Substance: ETHINYL ESTRADIOL\ETONOGESTREL
     Indication: CONTRACEPTION
     Dosage: UNK
     Route: 067
     Dates: start: 20080128, end: 20080217

REACTIONS (3)
  - Deep vein thrombosis [Recovered/Resolved with Sequelae]
  - Migraine [Unknown]
  - Adnexa uteri cyst [Unknown]

NARRATIVE: CASE EVENT DATE: 200802
